FAERS Safety Report 12925695 (Version 2)
Quarter: 2017Q1

REPORT INFORMATION
  Report Type: Spontaneous
  Country: US (occurrence: US)
  Receive Date: 20161108
  Receipt Date: 20170209
  Transmission Date: 20170428
  Serious: No
  Sender: FDA-Public Use
  Company Number: US-SA-2016SA195011

PATIENT
  Age: 68 Year
  Sex: Male

DRUGS (11)
  1. CLINDAMYCIN. [Concomitant]
     Active Substance: CLINDAMYCIN
  2. HUMULIN R [Concomitant]
     Active Substance: INSULIN HUMAN
  3. FLUTICASONE. [Concomitant]
     Active Substance: FLUTICASONE
  4. NITROSTAT [Concomitant]
     Active Substance: NITROGLYCERIN
  5. ALIROCUMAB PREFILLED PEN [Concomitant]
     Active Substance: ALIROCUMAB
  6. PRALUENT [Suspect]
     Active Substance: ALIROCUMAB
     Route: 065
     Dates: start: 20160921
  7. VIAGRA [Concomitant]
     Active Substance: SILDENAFIL CITRATE
  8. AZELASTINE [Concomitant]
     Active Substance: AZELASTINE
  9. CEFDINIR. [Concomitant]
     Active Substance: CEFDINIR
  10. VENTOLIN [Concomitant]
     Active Substance: ALBUTEROL SULFATE
  11. BENICAR HCT [Concomitant]
     Active Substance: HYDROCHLOROTHIAZIDE\OLMESARTAN MEDOXOMIL

REACTIONS (4)
  - Fatigue [Unknown]
  - Muscular weakness [Unknown]
  - Gastrointestinal disorder [Unknown]
  - Confusional state [Unknown]
